FAERS Safety Report 8432876-5 (Version None)
Quarter: 2012Q2

REPORT INFORMATION
  Report Type: 
  Country: None (occurrence: None)
  Receive Date: 20120613
  Receipt Date: 20120608
  Transmission Date: 20120825
  Serious: Yes (Hospitalization)
  Sender: FDA-Public Use
  Company Number: 2012SP001648

PATIENT
  Age: 24 Year
  Sex: Female

DRUGS (2)
  1. GEODON [Concomitant]
     Indication: SCHIZOAFFECTIVE DISORDER
  2. LATUDA [Suspect]
     Indication: SCHIZOAFFECTIVE DISORDER
     Route: 048
     Dates: start: 20110801, end: 20120101

REACTIONS (7)
  - PARANOIA [None]
  - SWELLING FACE [None]
  - LIP SWELLING [None]
  - SCREAMING [None]
  - EYE SWELLING [None]
  - PSYCHOTIC DISORDER [None]
  - URTICARIA [None]
